FAERS Safety Report 5299917-8 (Version None)
Quarter: 2007Q2

REPORT INFORMATION
  Report Type: 
  Country: None (occurrence: None)
  Receive Date: 20070410
  Receipt Date: 20070320
  Transmission Date: 20071010
  Serious: Yes (Life-Threatening, Hospitalization, Disabling)
  Sender: FDA-Public Use
  Company Number: B0460486A

PATIENT
  Age: 58 Year
  Sex: Female
  Weight: 56.8811 kg

DRUGS (3)
  1. VALTREX [Suspect]
     Indication: HERPES ZOSTER
     Dosage: 1000 MG THREE TIMES PER DAY ORAL
     Route: 048
     Dates: start: 20070219, end: 20070221
  2. LEVOFLOXACIN [Concomitant]
  3. VIDARABINE [Concomitant]

REACTIONS (10)
  - CONFUSIONAL STATE [None]
  - DEPRESSED LEVEL OF CONSCIOUSNESS [None]
  - DIALYSIS [None]
  - DIZZINESS [None]
  - HALLUCINATION [None]
  - HEADACHE [None]
  - PSYCHIATRIC SYMPTOM [None]
  - PYREXIA [None]
  - RENAL FAILURE ACUTE [None]
  - URINARY RETENTION [None]
